FAERS Safety Report 7212702-2 (Version None)
Quarter: 2010Q4

REPORT INFORMATION
  Report Type: 
  Country: None (occurrence: None)
  Receive Date: 20101126
  Receipt Date: 20101011
  Transmission Date: 20110411
  Serious: No
  Sender: FDA-Public Use
  Company Number: 316586

PATIENT
  Age: 62 Year
  Sex: Female

DRUGS (5)
  1. VICTOZA [Suspect]
     Indication: BLOOD GLUCOSE FLUCTUATION
     Dosage: SEE IMAGE
     Route: 058
     Dates: start: 20100805, end: 20100812
  2. VICTOZA [Suspect]
     Indication: BLOOD GLUCOSE FLUCTUATION
     Dosage: SEE IMAGE
     Route: 058
     Dates: start: 20100812, end: 20100914
  3. VICTOZA [Suspect]
     Indication: BLOOD GLUCOSE FLUCTUATION
     Dosage: SEE IMAGE
     Route: 058
     Dates: end: 20100922
  4. VICTOZA [Suspect]
     Indication: BLOOD GLUCOSE FLUCTUATION
     Dosage: SEE IMAGE
     Route: 058
     Dates: start: 20100914
  5. LANTUS [Concomitant]

REACTIONS (4)
  - ABDOMINAL PAIN [None]
  - NAUSEA [None]
  - VOMITING [None]
  - WEIGHT DECREASED [None]
